FAERS Safety Report 24450214 (Version 2)
Quarter: 2025Q1

REPORT INFORMATION
  Report Type: Spontaneous
  Country: JP (occurrence: JP)
  Receive Date: 20241017
  Receipt Date: 20250123
  Transmission Date: 20250409
  Serious: Yes (Death)
  Sender: PFIZER
  Company Number: JP-PFIZER INC-PV202400070655

PATIENT

DRUGS (2)
  1. INLYTA [Suspect]
     Active Substance: AXITINIB
     Indication: Metastatic renal cell carcinoma
     Route: 048
  2. AVELUMAB [Concomitant]
     Active Substance: AVELUMAB
     Indication: Metastatic renal cell carcinoma

REACTIONS (3)
  - Myocardial infarction [Fatal]
  - Proteinuria [Recovered/Resolved]
  - Neoplasm progression [Unknown]
